FAERS Safety Report 9537076 (Version 2)
Quarter: 2013Q3

REPORT INFORMATION
  Report Type: Spontaneous
  Country: US (occurrence: US)
  Receive Date: 20130919
  Receipt Date: 20130919
  Transmission Date: 20140515
  Serious: Yes (Other)
  Sender: FDA-Public Use
  Company Number: US-PFIZER INC-2013133012

PATIENT
  Age: 46 Year
  Sex: Female

DRUGS (4)
  1. DILANTIN [Suspect]
     Indication: CONVULSION
     Dosage: 300 MG, UNK
     Route: 048
     Dates: start: 20001012
  2. DILANTIN [Suspect]
     Dosage: TWO DOSES OF 300 MG THEN DOSE OF 400 MG AND THIRD DOSE OF 300MG
     Route: 048
     Dates: start: 20001017
  3. DILANTIN [Suspect]
     Dosage: 300 MG, 1X/DAY, EVERY NIGHT AT BED TIME
     Route: 048
     Dates: start: 20001018, end: 200101
  4. DILANTIN [Suspect]
     Indication: CONVULSION
     Dosage: 100 MG, 3X/DAY
     Route: 042
     Dates: start: 20001016

REACTIONS (2)
  - Stevens-Johnson syndrome [Unknown]
  - Toxic epidermal necrolysis [Unknown]
